FAERS Safety Report 12341293 (Version 1)
Quarter: 2016Q2

REPORT INFORMATION
  Report Type: Spontaneous
  Country: GB (occurrence: GB)
  Receive Date: 20160506
  Receipt Date: 20160506
  Transmission Date: 20160815
  Serious: Yes (Other)
  Sender: FDA-Public Use
  Company Number: GB-B. BRAUN MEDICAL INC.-1051557

PATIENT
  Age: 61 Year
  Sex: Female
  Weight: 121 kg

DRUGS (11)
  1. AMOXICILLIN. [Concomitant]
     Active Substance: AMOXICILLIN
     Dates: start: 20160204, end: 20160211
  2. CEFALEXIN [Concomitant]
     Active Substance: CEPHALEXIN
     Dates: start: 20160322, end: 20160329
  3. LOPERAMIDE [Concomitant]
     Active Substance: LOPERAMIDE
     Dates: start: 20160112
  4. CO-AMILOFRUSE [Concomitant]
     Active Substance: AMILORIDE\FUROSEMIDE
     Dates: start: 20160112
  5. DICLOFENAC SODIUM. [Concomitant]
     Active Substance: DICLOFENAC SODIUM
     Dates: start: 20160322, end: 20160405
  6. AIROMIR/ SALBUTAMOL SULPHATE [Concomitant]
     Dates: start: 20160112
  7. CALCIUM CARBONATE. [Concomitant]
     Active Substance: CALCIUM CARBONATE
     Dates: start: 20160112
  8. CHLORPHENAMINE [Concomitant]
     Active Substance: CHLORPHENIRAMINE MALEATE
     Dates: start: 20160325
  9. LIDOCAINE HYDROCHLORIDE AND DEXTROSE [Suspect]
     Active Substance: LIDOCAINE HYDROCHLORIDE\LIDOCAINE HYDROCHLORIDE ANHYDROUS
     Dates: start: 20160401
  10. COCODAMOL [Concomitant]
     Active Substance: ACETAMINOPHEN\CODEINE PHOSPHATE
     Dates: start: 20160322, end: 20160403
  11. CITALOPRAM [Concomitant]
     Active Substance: CITALOPRAM HYDROBROMIDE
     Dates: start: 20160112

REACTIONS (1)
  - Swelling face [None]
